FAERS Safety Report 9660628 (Version 1)
Quarter: 2013Q4

REPORT INFORMATION
  Report Type: Spontaneous
  Country: JP (occurrence: JP)
  Receive Date: 20131031
  Receipt Date: 20131031
  Transmission Date: 20140711
  Serious: Yes (Other)
  Sender: FDA-Public Use
  Company Number: JP-UCBSA-101661

PATIENT
  Age: 59 Year
  Sex: Male

DRUGS (7)
  1. E KEPPRA [Suspect]
     Indication: TEMPORAL LOBE EPILEPSY
     Route: 048
  2. PHENYTOIN [Concomitant]
     Dosage: DAILY DOSE: 300 MG
     Route: 048
  3. CARBAMAZEPINE [Concomitant]
     Dosage: DAILY DOSE: 1200 MG
     Route: 048
  4. CLONAZEPAM [Concomitant]
     Dosage: DAILY DOSE: 1 MG
     Route: 048
  5. TOPIRAMATE [Concomitant]
     Dosage: DAILY DOSE: 300 MG
     Route: 048
  6. ALFACALCIDOL [Concomitant]
     Dosage: DAILY DOSE: 2 MICROGRAMS
     Route: 048
  7. MINODRONIC ACID HYDRATE [Concomitant]
     Route: 048

REACTIONS (1)
  - Osteomalacia [Unknown]
